FAERS Safety Report 14723648 (Version 2)
Quarter: 2018Q2

REPORT INFORMATION
  Report Type: Report from Study
  Country: US (occurrence: US)
  Receive Date: 20180405
  Receipt Date: 20180413
  Transmission Date: 20180711
  Serious: Yes (Hospitalization)
  Sender: FDA-Public Use
  Company Number: US-VERTEX PHARMACEUTICALS-2018-001825

PATIENT
  Age: 21 Year
  Sex: Male
  Weight: 60 kg

DRUGS (36)
  1. SOMINEX                            /00000402/ [Concomitant]
     Dosage: 25 MG AT BEDTIME AS NEEDED
     Route: 048
  2. IMODIUM [Concomitant]
     Active Substance: LOPERAMIDE HYDROCHLORIDE
     Indication: DIARRHOEA
     Dosage: 2 DOSAGE FORM, TID
     Route: 048
  3. NICORETTE [Concomitant]
     Active Substance: NICOTINE
     Dosage: 4 MG, EVERY FOUR TO SIX HOURS
  4. SENOKOT [Concomitant]
     Active Substance: SENNOSIDES
     Dosage: 17.2 MG, BID
     Route: 048
  5. ZOLOFT [Concomitant]
     Active Substance: SERTRALINE HYDROCHLORIDE
     Dosage: 200 MG, EVERY MORNING
     Route: 048
  6. SODIUM CHLORIDE. [Concomitant]
     Active Substance: SODIUM CHLORIDE
     Dosage: 10 MILLILITER AS DIRECTED
  7. ZYRTEC [Concomitant]
     Active Substance: CETIRIZINE HYDROCHLORIDE
     Dosage: 10 MG AT BEDTIME
     Route: 048
  8. VITAMIN D3 [Concomitant]
     Active Substance: CHOLECALCIFEROL
     Dosage: 15000 UT, QD
     Route: 048
  9. XOPENEX [Concomitant]
     Active Substance: LEVALBUTEROL HYDROCHLORIDE
     Dosage: 4 TIMES PER DAY FOR AIRWAY CLEARANCE
     Route: 055
  10. NASONEX [Concomitant]
     Active Substance: MOMETASONE FUROATE
     Dosage: 1 SPRAY IN EACH NOSTRIL, BID
     Route: 045
  11. HYPERSAL [Concomitant]
     Dosage: 4 MILLILITER, BID
     Route: 055
  12. TOBI [Concomitant]
     Active Substance: TOBRAMYCIN
     Dosage: 4 CAPSULES (112 MG) VIA INHALER TWO TIMES DAILY.
     Route: 055
  13. VITAMIN A                          /00056001/ [Concomitant]
     Active Substance: RETINOL
     Dosage: 10000 UT, QD
  14. PERIACTIN [Concomitant]
     Active Substance: CYPROHEPTADINE HYDROCHLORIDE
     Dosage: 12 MG,AT BED TIME
     Route: 048
  15. VITAMIN E                          /00110501/ [Concomitant]
     Active Substance: TOCOPHEROL
     Dosage: 800 UT, QD
     Route: 048
  16. PULMICORT TURBUHALER [Concomitant]
     Active Substance: BUDESONIDE
     Indication: NASAL INFLAMMATION
     Dosage: UNK UNK, BID
     Route: 055
  17. COLYMYCIN                          /00013206/ [Concomitant]
     Dosage: 150 MG, BID
     Route: 055
  18. PULMOZYME [Concomitant]
     Active Substance: DORNASE ALFA
     Dosage: 2.5 MG, BID
     Route: 055
  19. XOPENEX HFA [Concomitant]
     Active Substance: LEVALBUTEROL TARTRATE
     Indication: WHEEZING
  20. MIRALAX [Concomitant]
     Active Substance: POLYETHYLENE GLYCOL 3350
     Dosage: 17 GRAM, TID
     Route: 048
  21. COLACE [Concomitant]
     Active Substance: DOCUSATE SODIUM
     Dosage: 200 MG IN THE MORNING, 100 MG AT NIGHT
  22. OCEAN NASAL [Concomitant]
     Dosage: 2 SPRAYS, QID
     Route: 045
  23. SYMDEKO [Suspect]
     Active Substance: IVACAFTOR\TEZACAFTOR
     Indication: CYSTIC FIBROSIS
     Dosage: TEZACAFTOR 100MG/IVACAFTOR 150MG AM; IVACAFTOR 150MG PM DAILY
     Route: 048
     Dates: start: 20180305, end: 2018
  24. SUBOXONE [Concomitant]
     Active Substance: BUPRENORPHINE HYDROCHLORIDE\NALOXONE HYDROCHLORIDE
     Dosage: 2 FILMS, BID
     Route: 060
  25. DORYX                              /00055701/ [Concomitant]
     Dosage: 100 MG, BID
     Route: 048
  26. ENSURE PLUS ADVANCE [Concomitant]
     Dosage: 1CAN, BID
     Route: 048
  27. XOPENEX HFA [Concomitant]
     Active Substance: LEVALBUTEROL TARTRATE
     Indication: COUGH
     Dosage: 2 PUFFS, EVERY FOUR TO SIX HOURS
     Route: 048
  28. XOPENEX HFA [Concomitant]
     Active Substance: LEVALBUTEROL TARTRATE
     Indication: DYSPNOEA
  29. ZOFRAN [Concomitant]
     Active Substance: ONDANSETRON HYDROCHLORIDE
     Indication: NAUSEA
     Dosage: 4-8 MG, TID
     Route: 048
  30. SYMBICORT [Concomitant]
     Active Substance: BUDESONIDE\FORMOTEROL FUMARATE DIHYDRATE
     Dosage: 2 PUFFS, BID
     Route: 048
  31. NEXIUM [Concomitant]
     Active Substance: ESOMEPRAZOLE MAGNESIUM
     Dosage: 40 MG, BID
  32. HEPARIN [Concomitant]
     Active Substance: HEPARIN SODIUM
     Dosage: 5 ML AS DIRECTED
  33. CREON [Concomitant]
     Active Substance: PANCRELIPASE AMYLASE\PANCRELIPASE LIPASE\PANCRELIPASE PROTEASE
     Dosage: 4 CAPSULES DAILY WITH MEALS AND SNACKS
     Route: 048
  34. AQUADEKS                           /07679501/ [Concomitant]
     Active Substance: MINERALS\VITAMINS
     Dosage: 3 TABLETS, BID
  35. DESYREL [Concomitant]
     Active Substance: TRAZODONE HYDROCHLORIDE
     Dosage: 1-2 TABELTS,  AT BEDTIME
     Route: 048
  36. URSO FORTE [Concomitant]
     Active Substance: URSODIOL
     Dosage: 500MG BY MOUTH IN THE AM AND 750MG IN PM
     Route: 048

REACTIONS (3)
  - Vomiting [Recovering/Resolving]
  - Infective pulmonary exacerbation of cystic fibrosis [Recovering/Resolving]
  - Nausea [Recovering/Resolving]

NARRATIVE: CASE EVENT DATE: 201803
